FAERS Safety Report 19172772 (Version 1)
Quarter: 2021Q2

REPORT INFORMATION
  Report Type: Report from Study
  Country: US (occurrence: US)
  Receive Date: 20210423
  Receipt Date: 20210423
  Transmission Date: 20210717
  Serious: Yes (Hospitalization)
  Sender: FDA-Public Use
  Company Number: US-EISAI MEDICAL RESEARCH-EC-2021-091565

PATIENT
  Age: 56 Year
  Sex: Male

DRUGS (3)
  1. LENVIMA [Suspect]
     Active Substance: LENVATINIB
     Route: 048
     Dates: start: 202102, end: 20210327
  2. LENVIMA [Suspect]
     Active Substance: LENVATINIB
     Route: 048
     Dates: start: 202104, end: 202104
  3. LENVIMA [Suspect]
     Active Substance: LENVATINIB
     Route: 048
     Dates: start: 20210413

REACTIONS (8)
  - Vomiting [Not Recovered/Not Resolved]
  - Decreased appetite [Not Recovered/Not Resolved]
  - Abdominal pain [Not Recovered/Not Resolved]
  - Nausea [Not Recovered/Not Resolved]
  - White blood cell count decreased [Recovering/Resolving]
  - Clostridium difficile infection [Recovered/Resolved]
  - Fatigue [Not Recovered/Not Resolved]
  - Diarrhoea [Not Recovered/Not Resolved]

NARRATIVE: CASE EVENT DATE: 20210327
